FAERS Safety Report 12475645 (Version 6)
Quarter: 2021Q2

REPORT INFORMATION
  Report Type: Spontaneous
  Country: JP (occurrence: JP)
  Receive Date: 20160617
  Receipt Date: 20210422
  Transmission Date: 20210716
  Serious: Yes (Life-Threatening, Hospitalization, Disabling, Other)
  Sender: FDA-Public Use
  Company Number: JP-009507513-1606JPN006566

PATIENT
  Age: 69 Year
  Sex: Male
  Weight: 60 kg

DRUGS (12)
  1. E KEPPRA [Suspect]
     Active Substance: LEVETIRACETAM
     Indication: PROPHYLAXIS
     Dosage: 500 MILLIGRAM, BID
     Route: 048
     Dates: start: 20151217, end: 20160316
  2. LANSOPRAZOLE. [Suspect]
     Active Substance: LANSOPRAZOLE
     Indication: PROPHYLAXIS
     Dosage: 15 MILLIGRAM, QD
     Route: 048
     Dates: start: 20151228
  3. MAGNESIUM OXIDE. [Concomitant]
     Active Substance: MAGNESIUM OXIDE
     Dosage: 660 MILLIGRAM, TID
     Route: 048
     Dates: start: 20160116, end: 20160310
  4. REMERON [Concomitant]
     Active Substance: MIRTAZAPINE
     Indication: DEPRESSION
     Dosage: 15 MILLIGRAM, QD
     Route: 048
     Dates: start: 20160307, end: 20160425
  5. ZYPREXA [Concomitant]
     Active Substance: OLANZAPINE
     Indication: RESTLESSNESS
     Dosage: 2.5 MILLIGRAM, QD
     Route: 048
     Dates: start: 20160307, end: 20160430
  6. ONCOVIN [Concomitant]
     Active Substance: VINCRISTINE SULFATE
     Indication: MALIGNANT GLIOMA
     Dosage: 1 MILLIGRAM, BID
     Route: 051
  7. TEMODAL [Suspect]
     Active Substance: TEMOZOLOMIDE
     Indication: MALIGNANT GLIOMA
     Dosage: 100 MILLIGRAM, QD
     Route: 048
     Dates: start: 20160114, end: 20160229
  8. TSUMURA RIKKUNSHITO EXTRACT GRANULES FOR ETHICAL USE [Suspect]
     Active Substance: HERBALS
     Indication: DECREASED APPETITE
     Dosage: 2.5 GRAM, TID
     Route: 048
     Dates: start: 20160114, end: 20160229
  9. INTERFERON BETA NOS [Suspect]
     Active Substance: INTERFERON BETA
     Indication: MALIGNANT GLIOMA
     Dosage: 3 MILLION IU A DAY
     Route: 041
     Dates: start: 20160114, end: 20160229
  10. SENNOSIDE [Concomitant]
     Active Substance: SENNOSIDES
     Dosage: 12 MILLIGRAM, BID
     Route: 048
     Dates: start: 20160117, end: 20160310
  11. BAKTAR [Suspect]
     Active Substance: SULFAMETHOXAZOLE\TRIMETHOPRIM
     Indication: PROPHYLAXIS
     Dosage: 1 DOSAGE FORM, MON TUE FRI
     Route: 048
     Dates: start: 20160113
  12. NASEA OD [Suspect]
     Active Substance: RAMOSETRON HYDROCHLORIDE
     Indication: PROPHYLAXIS
     Dosage: 0.1 MILLIGRAM, QD
     Route: 048
     Dates: start: 20160114, end: 20160229

REACTIONS (8)
  - Nausea [Recovering/Resolving]
  - Depression [Recovering/Resolving]
  - Affective disorder [Recovering/Resolving]
  - Decreased appetite [Not Recovered/Not Resolved]
  - Aplasia pure red cell [Not Recovered/Not Resolved]
  - Myelodysplastic syndrome [Recovered/Resolved]
  - Malaise [Recovering/Resolving]
  - Pancytopenia [Recovering/Resolving]

NARRATIVE: CASE EVENT DATE: 20160201
